FAERS Safety Report 5900379-5 (Version None)
Quarter: 2008Q3

REPORT INFORMATION
  Report Type: 
  Country: None (occurrence: None)
  Receive Date: 20080926
  Receipt Date: 20080916
  Transmission Date: 20090109
  Serious: Yes (Other)
  Sender: FDA-Public Use
  Company Number: US-PFIZER INC-2007022971

PATIENT
  Sex: Female
  Weight: 59 kg

DRUGS (10)
  1. CHANTIX [Suspect]
     Indication: SMOKING CESSATION THERAPY
     Dates: start: 20061122
  2. DRUG, UNSPECIFIED [Suspect]
  3. NEURONTIN [Concomitant]
  4. PROMETHAZINE [Concomitant]
     Indication: NAUSEA
  5. OXYCODONE HCL [Concomitant]
  6. ENDOCET [Concomitant]
  7. GOODYS POWDERS [Concomitant]
  8. SKELAXIN [Concomitant]
  9. SOMA [Concomitant]
     Indication: MUSCLE RELAXANT THERAPY
  10. FLAXSEED OIL [Concomitant]
     Indication: CONSTIPATION

REACTIONS (8)
  - DRUG INEFFECTIVE [None]
  - HEADACHE [None]
  - INCORRECT DOSE ADMINISTERED [None]
  - INSOMNIA [None]
  - MALAISE [None]
  - NAUSEA [None]
  - NERVE INJURY [None]
  - TOBACCO USER [None]
